FAERS Safety Report 7359025-9 (Version None)
Quarter: 2011Q1

REPORT INFORMATION
  Report Type: 
  Country: None (occurrence: None)
  Receive Date: 20110317
  Receipt Date: 20110315
  Transmission Date: 20110831
  Serious: Yes (Hospitalization, Other)
  Sender: FDA-Public Use
  Company Number: DE-ABBOTT-11P-062-0695891-00

PATIENT
  Sex: Female
  Weight: 60 kg

DRUGS (8)
  1. AZULFIDINE [Concomitant]
     Indication: RHEUMATOID ARTHRITIS
  2. DECORTIN [Concomitant]
     Indication: PRODUCT USED FOR UNKNOWN INDICATION
  3. HUMIRA [Suspect]
     Indication: RHEUMATOID ARTHRITIS
     Route: 058
     Dates: start: 20070701, end: 20101201
  4. Q10 [Concomitant]
     Indication: PRODUCT USED FOR UNKNOWN INDICATION
  5. DEKRISTOL [Concomitant]
  6. QUENSYL [Concomitant]
     Indication: PRODUCT USED FOR UNKNOWN INDICATION
  7. CORTISONE [Concomitant]
     Indication: PRODUCT USED FOR UNKNOWN INDICATION
  8. ARAVA [Concomitant]
     Indication: PRODUCT USED FOR UNKNOWN INDICATION
     Dates: start: 20030101

REACTIONS (7)
  - DEBRIDEMENT [None]
  - SURGERY [None]
  - OSTEOSYNTHESIS [None]
  - ARTHROPATHY [None]
  - SYNOVITIS [None]
  - OSTEONECROSIS [None]
  - ARTHRODESIS [None]
